FAERS Safety Report 16767271 (Version 2)
Quarter: 2019Q4

REPORT INFORMATION
  Report Type: Spontaneous
  Country: US (occurrence: US)
  Receive Date: 20190903
  Receipt Date: 20191105
  Transmission Date: 20200122
  Serious: No
  Sender: FDA-Public Use
  Company Number: US-PFIZER INC-2019377137

PATIENT
  Age: 81 Year
  Sex: Female
  Weight: 36.28 kg

DRUGS (2)
  1. XELJANZ XR [Suspect]
     Active Substance: TOFACITINIB CITRATE
     Dosage: 11 MG, 1X/DAY
     Dates: start: 201609, end: 20190606
  2. TRAMADOL. [Concomitant]
     Active Substance: TRAMADOL
     Dosage: 15 MG, 1X/DAY
     Dates: start: 2014

REACTIONS (1)
  - Drug ineffective [Unknown]
